FAERS Safety Report 12552868 (Version 3)
Quarter: 2016Q3

REPORT INFORMATION
  Report Type: Spontaneous
  Country: FR (occurrence: FR)
  Receive Date: 20160713
  Receipt Date: 20160802
  Transmission Date: 20161109
  Serious: No
  Sender: FDA-Public Use
  Company Number: PHHY2016FR093866

PATIENT
  Sex: Male

DRUGS (1)
  1. RIMACTAN SANDOZ [Suspect]
     Active Substance: RIFAMPIN
     Indication: ARTHRITIS BACTERIAL
     Dosage: UNK
     Route: 048

REACTIONS (1)
  - Wrong technique in product usage process [Recovered/Resolved]
